FAERS Safety Report 5481416-1 (Version None)
Quarter: 2007Q4

REPORT INFORMATION
  Report Type: 
  Country: None (occurrence: None)
  Receive Date: 20071010
  Receipt Date: 20071009
  Transmission Date: 20080405
  Serious: Yes (Other)
  Sender: FDA-Public Use
  Company Number: A0686691A

PATIENT
  Age: 4 Year
  Sex: Male

DRUGS (1)
  1. VERAMYST [Suspect]
     Dosage: 1SPR PER DAY
     Route: 045

REACTIONS (2)
  - HALLUCINATION [None]
  - NIGHTMARE [None]
